FAERS Safety Report 4345748-2 (Version None)
Quarter: 2004Q2

REPORT INFORMATION
  Report Type: 
  Country: None (occurrence: None)
  Receive Date: 20040421
  Receipt Date: 20040408
  Transmission Date: 20050107
  Serious: Yes (Hospitalization)
  Sender: FDA-Public Use
  Company Number: MESA00204000989

PATIENT
  Age: 40 Year
  Sex: Female

DRUGS (3)
  1. MESALAZINE 5-AMINOSALICYLIC ACID (MANUFACTURER UNKNONW) (MESALAZINE) [Suspect]
     Indication: CROHN'S DISEASE
  2. CORTICOSTEROIDS [Suspect]
     Indication: CROHN'S DISEASE
     Dosage: UNKNOWN DAILY PO
     Route: 048
  3. AZATHIOPRINE [Suspect]
     Indication: CROHN'S DISEASE

REACTIONS (3)
  - COLONIC FISTULA [None]
  - DIARRHOEA [None]
  - PSEUDOPOLYP [None]
